FAERS Safety Report 7411044-X (Version None)
Quarter: 2011Q2

REPORT INFORMATION
  Report Type: 
  Country: None (occurrence: None)
  Receive Date: 20110405
  Receipt Date: 20110317
  Transmission Date: 20111010
  Serious: Yes (Death, Hospitalization)
  Sender: FDA-Public Use
  Company Number: 2011P1005200

PATIENT
  Age: 35 Year
  Sex: Male

DRUGS (6)
  1. AMLODIPINE [Suspect]
     Dosage: ; PO
     Route: 048
  2. LISINOPRIL [Suspect]
     Dosage: ; PO
     Route: 048
  3. CITALOPRAM (NO PREF. NAME) [Suspect]
     Dosage: ; PO
     Route: 048
  4. ALLOPURINOL [Suspect]
     Dosage: ; PO
     Route: 048
  5. ACETAMINOPHEN [Suspect]
     Dosage: ; PO
     Route: 048
  6. COLCHICINE [Suspect]
     Dosage: ; PO
     Route: 048

REACTIONS (20)
  - APNOEA [None]
  - SHOCK [None]
  - HYPERGLYCAEMIA [None]
  - DIALYSIS [None]
  - ELECTROCARDIOGRAM QRS COMPLEX PROLONGED [None]
  - MULTIPLE DRUG OVERDOSE INTENTIONAL [None]
  - BACK PAIN [None]
  - ALANINE AMINOTRANSFERASE INCREASED [None]
  - BRADYCARDIA [None]
  - RHABDOMYOLYSIS [None]
  - RENAL FAILURE [None]
  - HEART RATE INCREASED [None]
  - ASPARTATE AMINOTRANSFERASE INCREASED [None]
  - HYPERKALAEMIA [None]
  - COMPLETED SUICIDE [None]
  - DRUG EFFECT DECREASED [None]
  - HYPOTENSION [None]
  - HYPOXIA [None]
  - ATRIOVENTRICULAR BLOCK [None]
  - LOSS OF CONSCIOUSNESS [None]
